FAERS Safety Report 24136555 (Version 1)
Quarter: 2024Q3

REPORT INFORMATION
  Report Type: Spontaneous
  Country: US (occurrence: None)
  Receive Date: 20240724
  Receipt Date: 20240724
  Transmission Date: 20241016
  Serious: Yes (Hospitalization)
  Sender: Public
  Company Number: None

PATIENT
  Age: 80 Year
  Sex: Female

DRUGS (3)
  1. NUPLAZID [Suspect]
     Active Substance: PIMAVANSERIN TARTRATE
     Indication: Parkinson^s disease
     Dosage: FREQUENCY : DAILY;?
     Route: 048
     Dates: start: 20240520
  2. CIPRO [Suspect]
     Active Substance: CIPROFLOXACIN HYDROCHLORIDE
  3. FLUCONAZOLE [Suspect]
     Active Substance: FLUCONAZOLE

REACTIONS (2)
  - Atrial fibrillation [None]
  - Oesophageal infection [None]

NARRATIVE: CASE EVENT DATE: 20240629
